FAERS Safety Report 18005756 (Version 1)
Quarter: 2020Q3

REPORT INFORMATION
  Report Type: Report from Study
  Country: ZA (occurrence: ZA)
  Receive Date: 20200710
  Receipt Date: 20200710
  Transmission Date: 20201103
  Serious: Yes (Hospitalization, Other)
  Sender: FDA-Public Use
  Company Number: PHHY2019ZA029420

PATIENT
  Age: 55 Year
  Sex: Male

DRUGS (3)
  1. TUVIGIN [Suspect]
     Active Substance: FINGOLIMOD HYDROCHLORIDE
     Indication: RELAPSING-REMITTING MULTIPLE SCLEROSIS
     Dosage: 0.5 MG, QD
     Route: 048
     Dates: start: 20190205
  2. WELLBUTRIN [Concomitant]
     Active Substance: BUPROPION HYDROCHLORIDE
     Indication: PRODUCT USED FOR UNKNOWN INDICATION
     Dosage: UNK
     Route: 065
  3. TUVIGIN [Suspect]
     Active Substance: FINGOLIMOD HYDROCHLORIDE
     Indication: MULTIPLE SCLEROSIS
     Dosage: 0.5 MG, QD
     Route: 048

REACTIONS (9)
  - Expanded disability status scale [Unknown]
  - Heart rate increased [Recovered/Resolved]
  - Ataxia [Unknown]
  - Lymphocyte count decreased [Unknown]
  - Headache [Recovered/Resolved]
  - Muscular weakness [Unknown]
  - Pneumonia [Unknown]
  - White blood cell count decreased [Unknown]
  - Tremor [Unknown]

NARRATIVE: CASE EVENT DATE: 20190205
